FAERS Safety Report 10446155 (Version 3)
Quarter: 2014Q4

REPORT INFORMATION
  Report Type: Report from Study
  Country: JP (occurrence: JP)
  Receive Date: 20140910
  Receipt Date: 20141014
  Transmission Date: 20150528
  Serious: Yes (Hospitalization)
  Sender: FDA-Public Use
  Company Number: JP-BRISTOL-MYERS SQUIBB COMPANY-20806071

PATIENT
  Age: 79 Year
  Sex: Male

DRUGS (14)
  1. CARBOPLATIN. [Suspect]
     Active Substance: CARBOPLATIN
     Indication: SMALL CELL LUNG CANCER
     Dosage: 1DF = 400 MG/BODY
     Route: 042
     Dates: start: 20140226, end: 20140507
  2. APIXABAN [Concomitant]
     Active Substance: APIXABAN
     Dates: start: 20140214
  3. BLINDED: IPILIMUMAB [Suspect]
     Active Substance: IPILIMUMAB
     Indication: SMALL CELL LUNG CANCER
     Dosage: I DF= 520 MG/BODY ON 17APR2014 AND 540 MG/BODY ON 09MAY14
     Route: 042
     Dates: start: 20140417, end: 20140509
  4. ETOPOSIDE. [Suspect]
     Active Substance: ETOPOSIDE
     Indication: SMALL CELL LUNG CANCER
     Dosage: 150 MG/BODY FROM 26FEB2014 TO 28FEB2014 AND 120 MG/BODY FROM 25MAR2014 TO 09MAY2014
     Route: 042
     Dates: start: 20140226, end: 20140509
  5. ATORVASTATIN CALCIUM. [Concomitant]
     Active Substance: ATORVASTATIN CALCIUM
     Dates: start: 20140211
  6. L-CARBOCISTEINE [Concomitant]
     Active Substance: CARBOCYSTEINE
     Dates: start: 20140210
  7. PLACEBO [Suspect]
     Active Substance: UNSPECIFIED INGREDIENT
     Indication: SMALL CELL LUNG CANCER
     Route: 042
     Dates: start: 20140417, end: 20140509
  8. VALSARTAN. [Concomitant]
     Active Substance: VALSARTAN
     Dates: start: 20140211
  9. MEROPENEM. [Concomitant]
     Active Substance: MEROPENEM
  10. VEEN-D [Concomitant]
     Active Substance: DEXTROSE
  11. ASPIRIN. [Concomitant]
     Active Substance: ASPIRIN
     Dates: start: 20140218, end: 20140524
  12. FAMOTIDINE. [Concomitant]
     Active Substance: FAMOTIDINE
     Dates: start: 20140225
  13. POVIDONE-IODINE. [Concomitant]
     Active Substance: POVIDONE-IODINE
     Dates: start: 20140206
  14. HEPARINOID [Concomitant]
     Active Substance: CHONDROITIN SULFATE (BOVINE)
     Dates: start: 20140510

REACTIONS (3)
  - Myositis [Recovered/Resolved]
  - Febrile neutropenia [Recovered/Resolved]
  - Colitis [Recovered/Resolved]

NARRATIVE: CASE EVENT DATE: 20140520
